FAERS Safety Report 5680302-1 (Version None)
Quarter: 2008Q1

REPORT INFORMATION
  Report Type: 
  Country: None (occurrence: None)
  Receive Date: 20080326
  Receipt Date: 20080318
  Transmission Date: 20080703
  Serious: Yes (Other)
  Sender: FDA-Public Use
  Company Number: GB-TEVA-168915ISR

PATIENT
  Age: 65 Year
  Sex: Male

DRUGS (1)
  1. PHENYTOIN [Suspect]
     Route: 048

REACTIONS (3)
  - DYSPNOEA [None]
  - RENAL FAILURE [None]
  - RESPIRATORY FAILURE [None]
